FAERS Safety Report 9462684 (Version 2)
Quarter: 2013Q4

REPORT INFORMATION
  Report Type: Spontaneous
  Country: US (occurrence: None)
  Receive Date: 20130814
  Receipt Date: 20131023
  Transmission Date: 20140711
  Serious: Yes (Hospitalization, Other)
  Sender: FDA-Public Use
  Company Number: HA13-245-AE

PATIENT
  Age: 71 Year
  Sex: Female
  Weight: 56 kg

DRUGS (11)
  1. NAPROXEN [Suspect]
     Route: 048
     Dates: start: 20090303, end: 20100421
  2. CELECOXIB [Suspect]
  3. NEXIUM [Concomitant]
  4. IRBESARTAN [Concomitant]
  5. HYDROCHLOROTHIAZIDE [Concomitant]
  6. FAMOTIDINE [Concomitant]
  7. LOVASTATIN [Concomitant]
  8. ACETYLSALICYLIC ACID (ASPIRIN) [Concomitant]
  9. PARACETAMOL (ACETAMINOPHEN) [Concomitant]
  10. IBUPROFEN [Suspect]
  11. PLACEBO [Suspect]

REACTIONS (4)
  - Diverticulitis [None]
  - Gastrointestinal haemorrhage [None]
  - Upper gastrointestinal haemorrhage [None]
  - Urinary tract infection [None]
